FAERS Safety Report 5973204-4 (Version None)
Quarter: 2008Q4

REPORT INFORMATION
  Report Type: 
  Country: None (occurrence: None)
  Receive Date: 20081201
  Receipt Date: 20081120
  Transmission Date: 20090506
  Serious: Yes (Hospitalization)
  Sender: FDA-Public Use
  Company Number: FR-ELI_LILLY_AND_COMPANY-FR200810001110

PATIENT
  Age: 81 Year
  Sex: Female
  Weight: 45 kg

DRUGS (6)
  1. FORTEO [Suspect]
     Indication: OSTEOPOROSIS
     Dosage: 20 UG, DAILY (1/D)
     Route: 058
     Dates: start: 20080414
  2. APROVEL [Concomitant]
     Dosage: UNK, UNKNOWN
     Route: 065
  3. TAHOR [Concomitant]
     Dosage: UNK, UNKNOWN
     Route: 065
  4. KARDEGIC [Concomitant]
     Dosage: UNK, UNKNOWN
     Route: 065
  5. LEXOMIL [Concomitant]
     Dosage: UNK, UNKNOWN
     Route: 065
  6. ZYPREXA [Concomitant]
     Dosage: UNK, UNKNOWN
     Route: 065

REACTIONS (1)
  - INGUINAL HERNIA [None]
